FAERS Safety Report 4733291-8 (Version None)
Quarter: 2005Q3

REPORT INFORMATION
  Report Type: 
  Country: None (occurrence: None)
  Receive Date: 20050802
  Receipt Date: 20050719
  Transmission Date: 20060218
  Serious: Yes (Death)
  Sender: FDA-Public Use
  Company Number: 2005S1006401

PATIENT
  Age: 63 Year
  Sex: Male

DRUGS (6)
  1. CLOZAPINE [Suspect]
     Indication: DEMENTIA ALZHEIMER'S TYPE
     Dosage: 25 MG; BID; PO
     Route: 048
     Dates: start: 20020811, end: 20050618
  2. CLOPIDOGREL BISULFATE [Concomitant]
  3. FLUVOXAMINE MALEATE [Concomitant]
  4. LANSOPRAZOLE [Concomitant]
  5. ...... [Concomitant]
  6. GALANTAMINE HYDROBROMIDE [Concomitant]

REACTIONS (1)
  - DEATH [None]
